FAERS Safety Report 8789858 (Version 2)
Quarter: 2012Q4

REPORT INFORMATION
  Report Type: 
  Country: US (occurrence: US)
  Receive Date: 20120917
  Receipt Date: 20121003
  Transmission Date: 20130627
  Serious: No
  Sender: FDA-Public Use
  Company Number: US-VERTEX PHARMACEUTICAL INC.-2012-020325

PATIENT
  Age: 34 Year
  Sex: Male
  Weight: 79 kg

DRUGS (8)
  1. INCIVEK [Suspect]
     Indication: HEPATITIS C
     Dosage: 750 mg, UNK
     Route: 048
     Dates: start: 20120817
  2. RIBAVIRIN [Suspect]
     Indication: HEPATITIS C
     Dosage: 600 mg, bid
     Route: 048
     Dates: start: 20120817
  3. PEGASYS [Suspect]
     Indication: HEPATITIS C
     Dosage: 180 ?g, weekly
     Route: 058
     Dates: start: 20120817
  4. TRAMADOL [Concomitant]
     Indication: SUNBURN
  5. DEXEDRINE [Concomitant]
  6. GEODON                             /01487002/ [Concomitant]
  7. HYDROXYZINE [Concomitant]
  8. IMITREX                            /01044801/ [Concomitant]

REACTIONS (4)
  - Influenza like illness [Recovered/Resolved]
  - Pharyngeal oedema [Recovered/Resolved]
  - Oropharyngeal pain [Recovered/Resolved]
  - Rash maculo-papular [Not Recovered/Not Resolved]
